FAERS Safety Report 9307694 (Version 1)
Quarter: 2013Q2

REPORT INFORMATION
  Report Type: Spontaneous
  Country: BR (occurrence: BR)
  Receive Date: 20130524
  Receipt Date: 20130524
  Transmission Date: 20140414
  Serious: Yes (Hospitalization, Other)
  Sender: FDA-Public Use
  Company Number: BR-ELI_LILLY_AND_COMPANY-BR201305006897

PATIENT
  Age: 80 Year
  Sex: Male
  Weight: 90 kg

DRUGS (5)
  1. EFFIENT [Suspect]
     Indication: ANTIPLATELET THERAPY
     Dosage: 10 MG, QD
     Route: 048
     Dates: start: 201302, end: 201303
  2. ACETYLSALICYLIC ACID [Concomitant]
     Indication: ANTIPLATELET THERAPY
     Dosage: UNK UNK, QD
     Route: 048
     Dates: start: 201302, end: 201303
  3. TRIMETAZIDINE [Concomitant]
     Dosage: UNKNOWN
     Route: 065
  4. ATORVASTATIN [Concomitant]
     Dosage: UNKNOWN
     Route: 065
  5. TICAGRELOR [Concomitant]

REACTIONS (2)
  - Ulcer [Recovered/Resolved]
  - Haemorrhage [Recovered/Resolved]
